FAERS Safety Report 25104130 (Version 1)
Quarter: 2025Q1

REPORT INFORMATION
  Report Type: Report from Study
  Country: FR (occurrence: FR)
  Receive Date: 20250321
  Receipt Date: 20250321
  Transmission Date: 20250409
  Serious: Yes (Hospitalization, Other)
  Sender: NOVARTIS
  Company Number: FR-002147023-NVSC2025FR044237

PATIENT
  Age: 66 Year
  Sex: Male
  Weight: 104 kg

DRUGS (13)
  1. PLUVICTO [Suspect]
     Active Substance: LUTETIUM LU-177 VIPIVOTIDE TETRAXETAN
     Indication: Prostate cancer
     Route: 042
     Dates: start: 20241112, end: 20241112
  2. PLUVICTO [Suspect]
     Active Substance: LUTETIUM LU-177 VIPIVOTIDE TETRAXETAN
     Route: 042
     Dates: start: 20241226, end: 20241226
  3. PLUVICTO [Suspect]
     Active Substance: LUTETIUM LU-177 VIPIVOTIDE TETRAXETAN
     Route: 042
     Dates: start: 20250204, end: 20250204
  4. Decapeptyl [Concomitant]
     Indication: Prostate cancer
     Dosage: 1 DOSAGE FORM, Q3MO (ROUTE: INJECTION)
     Route: 050
     Dates: start: 20180220
  5. Decapeptyl [Concomitant]
     Dosage: LAST INTAKE BEFORE AE IN NOV 24: 1 INJ, QMO (ROUTE: INJECTION)
     Route: 050
     Dates: start: 202411
  6. SKENAN [Concomitant]
     Active Substance: MORPHINE SULFATE
     Indication: Pain
     Dosage: 40 MG, BID (40 MG X 2)
     Route: 065
     Dates: start: 20240924
  7. MORPHINE SULFATE [Concomitant]
     Active Substance: MORPHINE SULFATE
     Indication: Pain
     Route: 065
     Dates: start: 20240924
  8. GABAPENTIN [Concomitant]
     Active Substance: GABAPENTIN
     Indication: Pain
     Route: 065
     Dates: start: 20211108
  9. AMITRIPTYLINE HYDROCHLORIDE [Concomitant]
     Active Substance: AMITRIPTYLINE HYDROCHLORIDE
     Indication: Pain
     Route: 065
     Dates: start: 20210726
  10. PREDNISONE [Concomitant]
     Active Substance: PREDNISONE
     Indication: Product used for unknown indication
     Route: 065
  11. IRBESARTAN [Concomitant]
     Active Substance: IRBESARTAN
     Indication: Product used for unknown indication
     Route: 065
  12. ATORVASTATIN [Concomitant]
     Active Substance: ATORVASTATIN
     Indication: Product used for unknown indication
     Route: 065
  13. ESOMEPRAZOLE [Concomitant]
     Active Substance: ESOMEPRAZOLE
     Indication: Product used for unknown indication
     Route: 065

REACTIONS (13)
  - Septic shock [Recovered/Resolved]
  - Pneumonia staphylococcal [Recovered/Resolved]
  - Hypovolaemic shock [Recovered/Resolved]
  - Hypotension [Unknown]
  - Renal failure [Recovering/Resolving]
  - Acute kidney injury [Recovered/Resolved]
  - Creatinine renal clearance decreased [Recovered/Resolved]
  - Gastroenteritis [Recovered/Resolved]
  - Nausea [Recovered/Resolved]
  - Vomiting [Recovered/Resolved]
  - Diarrhoea [Recovered/Resolved]
  - Dehydration [Recovered/Resolved]
  - General physical health deterioration [Recovered/Resolved]

NARRATIVE: CASE EVENT DATE: 20241202
